FAERS Safety Report 7601651-3 (Version None)
Quarter: 2011Q2

REPORT INFORMATION
  Report Type: 
  Country: None (occurrence: None)
  Receive Date: 20110630
  Receipt Date: 20110624
  Transmission Date: 20111010
  Serious: Yes (Hospitalization)
  Sender: FDA-Public Use
  Company Number: DSU-2011-03464

PATIENT
  Age: 63 Year
  Sex: Female
  Weight: 63.5036 kg

DRUGS (3)
  1. AMBIEN [Concomitant]
  2. WELCHOL [Suspect]
     Indication: BLOOD CHOLESTEROL INCREASED
     Dosage: 7500 MG (3750 MG,BID),PER ORAL
     Route: 048
     Dates: start: 20110418, end: 20110428
  3. WELCHOL [Suspect]
     Indication: BLOOD CHOLESTEROL INCREASED
     Dosage: 7.5 GM (3.75 GM,BID),PER ORAL
     Route: 048
     Dates: start: 20110414, end: 20110417

REACTIONS (12)
  - DIZZINESS [None]
  - WEIGHT DECREASED [None]
  - OVERDOSE [None]
  - DYSPEPSIA [None]
  - BACK PAIN [None]
  - CYSTITIS [None]
  - CHROMATURIA [None]
  - CONSTIPATION [None]
  - DIVERTICULITIS [None]
  - RETCHING [None]
  - NAUSEA [None]
  - INFLUENZA LIKE ILLNESS [None]
